FAERS Safety Report 25030120 (Version 2)
Quarter: 2025Q1

REPORT INFORMATION
  Report Type: Spontaneous
  Country: CZ (occurrence: CZ)
  Receive Date: 20250303
  Receipt Date: 20250328
  Transmission Date: 20250408
  Serious: Yes (Death, Other)
  Sender: CELLTRION
  Company Number: CZ-SAMSUNG BIOEPIS-SB-2024-26721

PATIENT

DRUGS (1)
  1. ADALIMUMAB [Suspect]
     Active Substance: ADALIMUMAB
     Indication: Hidradenitis
     Dosage: 40 MG, 1/WEEK
     Route: 065

REACTIONS (2)
  - Squamous cell carcinoma of skin [Fatal]
  - Sepsis [Fatal]
